APPROVED DRUG PRODUCT: CROMOLYN SODIUM
Active Ingredient: CROMOLYN SODIUM
Strength: 4%
Dosage Form/Route: SOLUTION/DROPS;OPHTHALMIC
Application: A075282 | Product #001
Applicant: SANDOZ INC
Approved: Jun 16, 1999 | RLD: No | RS: Yes | Type: RX